FAERS Safety Report 16019053 (Version 1)
Quarter: 2019Q1

REPORT INFORMATION
  Report Type: Spontaneous
  Country: BG (occurrence: BG)
  Receive Date: 20190228
  Receipt Date: 20190228
  Transmission Date: 20190418
  Serious: Yes (Life-Threatening)
  Sender: FDA-Public Use
  Company Number: BG-BAYER-2019-040517

PATIENT
  Age: 45 Year
  Sex: Male

DRUGS (2)
  1. ACETYLSALICYLIC ACID (CARDIO) [Suspect]
     Active Substance: ASPIRIN
     Indication: HYPERTENSION
     Dosage: 1 DF, QD
  2. IRBESARTAN/HYDROCHLOROTHIAZIDE [Suspect]
     Active Substance: HYDROCHLOROTHIAZIDE\IRBESARTAN
     Indication: HYPERTENSION
     Dosage: 1 DF, QD

REACTIONS (2)
  - Product use in unapproved indication [None]
  - Malignant melanoma [Recovered/Resolved]
